FAERS Safety Report 16751604 (Version 1)
Quarter: 2019Q3

REPORT INFORMATION
  Report Type: Spontaneous
  Country: CN (occurrence: CN)
  Receive Date: 20190828
  Receipt Date: 20190828
  Transmission Date: 20191005
  Serious: Yes (Other)
  Sender: FDA-Public Use
  Company Number: CN-INCYTE CORPORATION-2019IN008699

PATIENT

DRUGS (1)
  1. JAKAVI [Suspect]
     Active Substance: RUXOLITINIB
     Indication: MYELOFIBROSIS
     Dosage: 3 DF, BID
     Route: 048
     Dates: start: 20121207

REACTIONS (4)
  - Platelet count abnormal [Unknown]
  - Haemoglobin abnormal [Unknown]
  - Anaemia [Unknown]
  - Red blood cell count abnormal [Unknown]
